FAERS Safety Report 16242418 (Version 1)
Quarter: 2019Q2

REPORT INFORMATION
  Report Type: Spontaneous
  Country: US (occurrence: US)
  Receive Date: 20190322
  Receipt Date: 20190322
  Transmission Date: 20190711
  Serious: Yes (Life-Threatening)
  Sender: FDA-Public Use
  Company Number: None

PATIENT
  Sex: Female
  Weight: 88 kg

DRUGS (25)
  1. VICTOZA [Suspect]
     Active Substance: LIRAGLUTIDE
     Indication: TYPE 2 DIABETES MELLITUS
     Dosage: ?          OTHER STRENGTH:18MG/ 3ML;OTHER ROUTE:INJECTION?
     Dates: start: 20140625, end: 20150817
  2. TIZANADINE [Concomitant]
     Active Substance: TIZANIDINE
  3. MAGNESIUM [Concomitant]
     Active Substance: MAGNESIUM
  4. LEVOTHYROXINE. [Concomitant]
     Active Substance: LEVOTHYROXINE
  5. NEXIUM [Concomitant]
     Active Substance: ESOMEPRAZOLE MAGNESIUM
  6. IRON [Concomitant]
     Active Substance: IRON
  7. ASA [Concomitant]
     Active Substance: ASPIRIN
  8. POTTASIUM CL ER [Concomitant]
  9. MIRALAX [Concomitant]
     Active Substance: POLYETHYLENE GLYCOL 3350
  10. PROLEIA [Concomitant]
  11. GLIPIZIDE. [Concomitant]
     Active Substance: GLIPIZIDE
  12. VITAMIN D3 [Concomitant]
     Active Substance: CHOLECALCIFEROL
  13. ZEMBRACE SYMTOUCH [Concomitant]
     Active Substance: SUMATRIPTAN SUCCINATE
  14. VIMBRYD [Concomitant]
  15. TYLENOL WITH CODEINE [Concomitant]
     Active Substance: ACETAMINOPHEN\CODEINE PHOSPHATE
  16. CALCIUM [Concomitant]
     Active Substance: CALCIUM
  17. ZINASAMIDE [Concomitant]
  18. SUMATRIPTAN SUCC [Concomitant]
     Active Substance: SUMATRIPTAN SUCCINATE
  19. ISOSORBIDE. [Concomitant]
     Active Substance: ISOSORBIDE
  20. CALCITREL [Concomitant]
  21. VENOFER IV IRON [Concomitant]
  22. BUSPIRONE [Concomitant]
     Active Substance: BUSPIRONE HYDROCHLORIDE
  23. LANTUS HUMILIN R [Concomitant]
  24. FINOFIBRATE [Concomitant]
     Active Substance: FENOFIBRATE
  25. STIOLTO INHA [Concomitant]

REACTIONS (5)
  - Muscle spasms [None]
  - Thyroid cancer [None]
  - Wrist fracture [None]
  - Nephropathy toxic [None]
  - Pathological fracture [None]
